FAERS Safety Report 10391252 (Version 6)
Quarter: 2015Q2

REPORT INFORMATION
  Report Type: Report from Study
  Country: JP (occurrence: JP)
  Receive Date: 20140818
  Receipt Date: 20150424
  Transmission Date: 20150821
  Serious: Yes (Life-Threatening, Hospitalization, Disabling, Other)
  Sender: FDA-Public Use
  Company Number: JP-ALEXION PHARMACEUTICALS INC.-A201403064

PATIENT

DRUGS (5)
  1. SOLIRIS [Suspect]
     Active Substance: ECULIZUMAB
     Indication: HAEMOLYTIC URAEMIC SYNDROME
     Dosage: 150 MG, SINGLE
     Route: 042
     Dates: start: 20130830, end: 20130830
  2. SOLIRIS [Suspect]
     Active Substance: ECULIZUMAB
     Dosage: 300 MG, SINGLE
     Route: 042
     Dates: start: 20130913, end: 20130913
  3. SOLIRIS [Suspect]
     Active Substance: ECULIZUMAB
     Dosage: 300 MG, Q3W
     Route: 042
     Dates: start: 20131022
  4. SOLIRIS [Suspect]
     Active Substance: ECULIZUMAB
     Dosage: 300 MG, SINGLE
     Route: 042
     Dates: start: 20130906, end: 20130906
  5. SOLIRIS [Suspect]
     Active Substance: ECULIZUMAB
     Dosage: 160 MG, SINGLE
     Route: 042
     Dates: start: 20131014, end: 20131014

REACTIONS (12)
  - Corynebacterium infection [Recovering/Resolving]
  - Catheter site infection [Recovering/Resolving]
  - Pseudomonas infection [Recovering/Resolving]
  - Infusion related reaction [Recovered/Resolved]
  - Diarrhoea [Recovering/Resolving]
  - Laryngeal stenosis [Not Recovered/Not Resolved]
  - Catheter site infection [Recovering/Resolving]
  - Infusion related reaction [Recovered/Resolved]
  - Pyrexia [Unknown]
  - Peritonitis [Recovering/Resolving]
  - Sepsis [Recovering/Resolving]
  - Corynebacterium infection [Recovering/Resolving]

NARRATIVE: CASE EVENT DATE: 20130830
